FAERS Safety Report 7535512-5 (Version None)
Quarter: 2011Q2

REPORT INFORMATION
  Report Type: 
  Country: None (occurrence: None)
  Receive Date: 20110609
  Receipt Date: 20110110
  Transmission Date: 20111010
  Serious: Yes (Hospitalization)
  Sender: FDA-Public Use
  Company Number: US-BAYER-201027359NA

PATIENT
  Age: 24 Year
  Sex: Female
  Weight: 47 kg

DRUGS (13)
  1. YASMIN [Suspect]
     Indication: CONTRACEPTION
     Dosage: START: 2004 OR 2005
     Route: 048
     Dates: end: 20090101
  2. YASMIN [Suspect]
     Indication: ACNE
  3. PROZAC [Concomitant]
     Indication: ANXIETY
     Dosage: UNK
     Dates: start: 20060901
  4. YAZ [Suspect]
     Indication: ACNE
  5. DROSPIRENONE AND ETHINYL ESTRADIOL [Suspect]
     Indication: ACNE
     Dosage: START: 2004 OR 2005
     Dates: end: 20090101
  6. IBUPROFEN [Concomitant]
  7. OXCARBAZEPINE [Concomitant]
     Indication: DEPRESSION
  8. TRAZODONE HCL [Concomitant]
  9. DROSPIRENONE AND ETHINYL ESTRADIOL [Suspect]
     Indication: CONTRACEPTION
  10. PROZAC [Concomitant]
     Indication: DEPRESSION
  11. OXCARBAZEPINE [Concomitant]
     Indication: ANXIETY
  12. YAZ [Suspect]
     Indication: CONTRACEPTION
     Dosage: START: 2004 OR 2005
     Route: 048
     Dates: end: 20090101
  13. ORTHO TRI-CYCLEN LO [Concomitant]
     Dosage: UNK
     Dates: start: 20070601, end: 20080701

REACTIONS (5)
  - CARDIOVASCULAR DISORDER [None]
  - PAIN [None]
  - CHEST PAIN [None]
  - DYSPNOEA [None]
  - HEART RATE IRREGULAR [None]
